FAERS Safety Report 23198619 (Version 2)
Quarter: 2023Q4

REPORT INFORMATION
  Report Type: Report from Study
  Country: US (occurrence: US)
  Receive Date: 20231117
  Receipt Date: 20231219
  Transmission Date: 20240110
  Serious: Yes (Other)
  Sender: FDA-Public Use
  Company Number: US-VERTEX PHARMACEUTICALS-2023-017107

PATIENT
  Sex: Female

DRUGS (8)
  1. ORKAMBI [Suspect]
     Active Substance: IVACAFTOR\LUMACAFTOR
     Indication: Cystic fibrosis
     Dosage: 1 PACKET GRANULES (75MG LUMACAFTOR/94MG IVACAFTOR)
     Route: 048
     Dates: start: 20230128, end: 20231009
  2. AZITHROMYCIN [Concomitant]
     Active Substance: AZITHROMYCIN
     Dosage: 200MG/ML-2ML EVERY MONDAY, WEDNESDAY AND FRIDAY
     Route: 048
  3. ADVAIR HFA [Concomitant]
     Active Substance: FLUTICASONE PROPIONATE\SALMETEROL XINAFOATE
     Dosage: 100/50
  4. ALBUTEROL [Concomitant]
     Active Substance: ALBUTEROL
     Dosage: INHALER
  5. ZENPEP [Concomitant]
     Active Substance: PANCRELIPASE AMYLASE\PANCRELIPASE LIPASE\PANCRELIPASE PROTEASE
  6. MIRALAX [Concomitant]
     Active Substance: POLYETHYLENE GLYCOL 3350
  7. PULMOZYME [Concomitant]
     Active Substance: DORNASE ALFA
  8. OMEPRAZOLE [Concomitant]
     Active Substance: OMEPRAZOLE

REACTIONS (7)
  - Mood altered [Recovered/Resolved]
  - Behaviour disorder [Recovered/Resolved]
  - Anger [Recovered/Resolved]
  - Upper limb fracture [Unknown]
  - Weight decreased [Unknown]
  - Hypophagia [Unknown]
  - Hepatic enzyme increased [Unknown]

NARRATIVE: CASE EVENT DATE: 20230101
